FAERS Safety Report 23130345 (Version 4)
Quarter: 2024Q2

REPORT INFORMATION
  Report Type: Report from Study
  Country: US (occurrence: US)
  Receive Date: 20231031
  Receipt Date: 20240510
  Transmission Date: 20240716
  Serious: No
  Sender: FDA-Public Use
  Company Number: US-ACADIA PHARMACEUTICALS INC.-ACA-2023-TRF-004590

PATIENT
  Age: 32 Year
  Sex: Female

DRUGS (4)
  1. DAYBUE [Suspect]
     Active Substance: TROFINETIDE
     Dosage: 30 MILLILITER
     Route: 065
     Dates: start: 202309
  2. DAYBUE [Suspect]
     Active Substance: TROFINETIDE
     Dosage: 35-40ML
     Route: 065
  3. DAYBUE [Suspect]
     Active Substance: TROFINETIDE
     Dosage: UNK
     Route: 065
  4. SIMETHICONE (DIMETHICONE) [Concomitant]
     Active Substance: DIMETHICONE
     Dosage: 125 MILLIGRAM WITH EVERY MEAL

REACTIONS (5)
  - Illness [Unknown]
  - Flatulence [Unknown]
  - Screaming [Unknown]
  - Aggression [Unknown]
  - Underdose [Unknown]
